FAERS Safety Report 18036127 (Version 1)
Quarter: 2020Q3

REPORT INFORMATION
  Report Type: Spontaneous
  Country: US (occurrence: US)
  Receive Date: 20200716
  Receipt Date: 20200716
  Transmission Date: 20201103
  Serious: No
  Sender: FDA-Public Use
  Company Number: None

PATIENT
  Age: 61 Year
  Sex: Female
  Weight: 106.14 kg

DRUGS (1)
  1. LEVOFLOXACIN (LEVOFLOXACIN 500MG TAB) [Suspect]
     Active Substance: LEVOFLOXACIN
     Indication: PRODUCT USED FOR UNKNOWN INDICATION
     Dates: start: 20181124

REACTIONS (2)
  - Respiratory failure [None]
  - Hypercapnia [None]

NARRATIVE: CASE EVENT DATE: 20181124
